FAERS Safety Report 23237755 (Version 3)
Quarter: 2025Q1

REPORT INFORMATION
  Report Type: Report from Study
  Country: KR (occurrence: KR)
  Receive Date: 20231128
  Receipt Date: 20250321
  Transmission Date: 20250408
  Serious: Yes (Hospitalization)
  Sender: ABBVIE
  Company Number: KR-ABBVIE-5510821

PATIENT
  Age: 51 Year
  Sex: Male
  Weight: 65 kg

DRUGS (27)
  1. RINVOQ [Suspect]
     Active Substance: UPADACITINIB
     Indication: Dermatitis atopic
     Dosage: 1 TABLET?FORM STRENGTH: 15 MILLIGRAM?MODIFIED-RELEASE FILM-COATED TABLET
     Route: 048
     Dates: start: 20230323, end: 20231030
  2. BISOPROLOL FUMARATE [Concomitant]
     Active Substance: BISOPROLOL FUMARATE
     Indication: Hypertension
     Dosage: FORM STRENGTH: 2.5MG
     Dates: start: 20210421
  3. Kyongbo ceftriaxone sodium [Concomitant]
     Indication: Cellulitis
     Route: 042
     Dates: start: 20230801, end: 20230807
  4. METHIMAZOLE [Concomitant]
     Active Substance: METHIMAZOLE
     Indication: Hypertension
     Dates: start: 20210421
  5. DIOVAN [Concomitant]
     Active Substance: VALSARTAN
     Indication: Hypertension
     Dosage: FILE COATED TAB ?FORM STRENGTH: 80MG
     Dates: start: 20210421
  6. Adipam [Concomitant]
     Indication: Dermatitis atopic
     Route: 048
     Dates: start: 20231030
  7. LEVOCETIRIZINE HYDROCHLORIDE [Concomitant]
     Active Substance: LEVOCETIRIZINE HYDROCHLORIDE
     Indication: Dermatitis atopic
     Dosage: FORM STRENGTH: 5MG?XYZAL
     Dates: start: 20221017
  8. Difuco [Concomitant]
     Indication: Dermatitis atopic
     Dates: start: 20230227
  9. XYZAL [Concomitant]
     Active Substance: LEVOCETIRIZINE DIHYDROCHLORIDE
     Indication: Dermatitis atopic
     Dosage: FROM STRENGTH: 5 MG
     Route: 048
     Dates: start: 20221017
  10. Bepoten [Concomitant]
     Indication: Dermatitis atopic
     Dosage: FORM STRENGTH: 10MG
     Dates: start: 20230313
  11. Roxol [Concomitant]
     Indication: Bronchitis
     Route: 048
     Dates: start: 20231004
  12. LAFUTIDINE [Concomitant]
     Active Substance: LAFUTIDINE
     Indication: Gastritis prophylaxis
     Dosage: FORM STRENGTH: 10MG
     Dates: start: 20230109
  13. PROPAFENONE [Concomitant]
     Active Substance: PROPAFENONE
     Indication: Atrial fibrillation
     Dosage: CAP ?FORM STRENGTH: 225MG
     Dates: start: 20210421
  14. COUGH SYRUP [Concomitant]
     Active Substance: DEXTROMETHORPHAN HYDROBROMIDE\GUAIFENESIN
     Indication: Bronchitis
     Route: 048
     Dates: start: 20230920, end: 20231004
  15. CARBOXYMETHYLCELLULOSE SODIUM [Concomitant]
     Active Substance: CARBOXYMETHYLCELLULOSE SODIUM
     Indication: Conjunctivitis allergic
     Dosage: DROP?FORM STRENGTH: 0.5%?REFRESHPLUSEYEDROP
     Dates: start: 20230327
  16. LEVODROPROPIZINE [Concomitant]
     Active Substance: LEVODROPROPIZINE
     Indication: Bronchitis
     Route: 048
     Dates: start: 20230816
  17. PROTOPIC [Concomitant]
     Active Substance: TACROLIMUS
     Indication: Dermatitis atopic
     Dates: start: 20230508
  18. Fullgram [Concomitant]
     Indication: Cellulitis
     Route: 042
     Dates: start: 20230801, end: 20230807
  19. EDOXABAN TOSYLATE [Concomitant]
     Active Substance: EDOXABAN TOSYLATE
     Indication: Atrial fibrillation
     Dosage: FORM STRENGTH: 60MG
     Dates: start: 20210421
  20. ERDOSTEINE [Concomitant]
     Active Substance: ERDOSTEINE
     Indication: Bronchitis
     Route: 048
     Dates: start: 20231004
  21. Aclofen [Concomitant]
     Indication: Cellulitis
     Route: 048
     Dates: start: 20230725, end: 20231019
  22. Esomezol [Concomitant]
     Indication: Gastritis prophylaxis
     Route: 048
     Dates: start: 20230816
  23. ACETYLCYSTEINE [Concomitant]
     Active Substance: ACETYLCYSTEINE
     Indication: Bronchitis
     Route: 048
     Dates: start: 20230816, end: 20231004
  24. THEOBROMINE [Concomitant]
     Active Substance: THEOBROMINE
     Indication: Bronchitis
     Route: 048
     Dates: start: 20230816
  25. Kyongbo cefaclor [Concomitant]
     Indication: Cellulitis
     Route: 048
     Dates: start: 20230725, end: 20230803
  26. METHOTREXATE [Concomitant]
     Active Substance: METHOTREXATE
     Indication: Product used for unknown indication
     Dates: start: 20221017, end: 20221020
  27. TACROLIMUS [Concomitant]
     Active Substance: TACROLIMUS
     Indication: Product used for unknown indication

REACTIONS (1)
  - Cellulitis [Recovered/Resolved]

NARRATIVE: CASE EVENT DATE: 20230801
